FAERS Safety Report 7517039-X (Version None)
Quarter: 2011Q2

REPORT INFORMATION
  Report Type: 
  Country: None (occurrence: None)
  Receive Date: 20110601
  Receipt Date: 20110518
  Transmission Date: 20111010
  Serious: Yes (Hospitalization)
  Sender: FDA-Public Use
  Company Number: JP-JNJFOC-20101006882

PATIENT
  Age: 58 Year
  Sex: Male
  Weight: 70 kg

DRUGS (15)
  1. PREDNISOLONE [Suspect]
     Indication: AUTOIMMUNE DISORDER
     Route: 048
     Dates: start: 20100430
  2. MYSER [Concomitant]
     Indication: PSORIASIS
     Dates: start: 20100420
  3. ACTONEL [Concomitant]
     Indication: PROPHYLAXIS
     Route: 048
     Dates: start: 20100430
  4. OXAROL [Concomitant]
     Indication: PSORIASIS
  5. REMICADE [Suspect]
     Indication: PSORIASIS
     Route: 042
     Dates: start: 20100423
  6. STARSIS [Concomitant]
     Indication: DIABETES MELLITUS
     Dosage: START DATE REPORTED AS BEFORE INITIATION OF INFLIXIMAB
     Route: 048
     Dates: end: 20100429
  7. METFORMIN HCL [Concomitant]
     Indication: DIABETES MELLITUS
     Dosage: START DATE REPORTED AS BEFORE INITIATION OF INFLIXIMAB
     Route: 048
     Dates: end: 20100429
  8. LOCOIDON [Concomitant]
     Indication: PSORIASIS
     Dates: start: 20100420
  9. RABEPRAZOLE SODIUM [Concomitant]
     Indication: PROPHYLAXIS
     Route: 048
     Dates: start: 20100430
  10. AMLODIPINE [Concomitant]
     Indication: HYPERTENSION
     Dosage: START DATE REPORTED AS BEFORE INITIATION OF INFLIXIMAB
     Route: 048
  11. ANTEBATE [Concomitant]
     Indication: PSORIASIS
     Dates: start: 20100420
  12. RINDERON-V [Concomitant]
     Indication: PSORIASIS
     Dates: start: 20100430
  13. BEZATOL [Concomitant]
     Indication: HYPERLIPIDAEMIA
     Dosage: START DATE REPORTED AS BEFORE INITIATION OF INFLIXIMAB
     Route: 048
  14. REMICADE [Suspect]
     Route: 042
     Dates: start: 20100507
  15. ANTEBATE [Concomitant]

REACTIONS (5)
  - PLEURAL INFECTION BACTERIAL [None]
  - PNEUMONIA BACTERIAL [None]
  - CYTOMEGALOVIRUS INFECTION [None]
  - BLOOD BETA-D-GLUCAN INCREASED [None]
  - BLOOD IMMUNOGLOBULIN G DECREASED [None]
